FAERS Safety Report 20370214 (Version 1)
Quarter: 2022Q1

REPORT INFORMATION
  Report Type: Spontaneous
  Country: US (occurrence: None)
  Receive Date: 20220124
  Receipt Date: 20220124
  Transmission Date: 20220424
  Serious: Yes (Hospitalization)
  Sender: FDA-Public Use
  Company Number: None

PATIENT
  Sex: Female

DRUGS (3)
  1. RETEVMO [Suspect]
     Active Substance: SELPERCATINIB
     Indication: Lung carcinoma cell type unspecified stage 0
     Dosage: FREQUENCY : TWICE A DAY;?
     Route: 048
     Dates: start: 20211215
  2. OXYCODONE [Concomitant]
     Active Substance: OXYCODONE
  3. TYLENOL [Concomitant]
     Active Substance: ACETAMINOPHEN

REACTIONS (5)
  - Therapy interrupted [None]
  - Joint swelling [None]
  - Dry skin [None]
  - Blood pressure increased [None]
  - Intramedullary rod insertion [None]
